FAERS Safety Report 4527143-6 (Version None)
Quarter: 2004Q4

REPORT INFORMATION
  Report Type: 
  Country: None (occurrence: None)
  Receive Date: 20041206
  Receipt Date: 20040722
  Transmission Date: 20050328
  Serious: No
  Sender: FDA-Public Use
  Company Number: 2004UW17509

PATIENT

DRUGS (1)
  1. MORPHINE [Suspect]
     Indication: SPINAL LAMINECTOMY
     Dosage: 1 MG/10MINUTES

REACTIONS (1)
  - RESPIRATORY DEPRESSION [None]
